FAERS Safety Report 9420980 (Version 1)
Quarter: 2013Q3

REPORT INFORMATION
  Report Type: Spontaneous
  Country: AU (occurrence: AU)
  Receive Date: 20130725
  Receipt Date: 20130725
  Transmission Date: 20140515
  Serious: Yes (Other)
  Sender: FDA-Public Use
  Company Number: AU-009507513-1307AUS010373

PATIENT
  Age: 5 Year
  Sex: Female
  Weight: 24 kg

DRUGS (1)
  1. CLARATYNE [Suspect]
     Dosage: 2XDOSE
     Route: 048

REACTIONS (4)
  - Cardiac operation [Recovering/Resolving]
  - Cardiac disorder [Recovering/Resolving]
  - Accidental exposure to product by child [Unknown]
  - Accidental overdose [Unknown]
